FAERS Safety Report 21822955 (Version 1)
Quarter: 2023Q1

REPORT INFORMATION
  Report Type: Spontaneous
  Country: US (occurrence: US)
  Receive Date: 20230105
  Receipt Date: 20230105
  Transmission Date: 20230418
  Serious: Yes (Life-Threatening, Hospitalization)
  Sender: FDA-Public Use
  Company Number: US-AMNEAL PHARMACEUTICALS-2022-AMRX-03338

PATIENT
  Age: 49 Year
  Sex: Female
  Weight: 93.44 kg

DRUGS (9)
  1. ACTIVELLA [Suspect]
     Active Substance: ESTRADIOL\NORETHINDRONE ACETATE
     Indication: Uterine leiomyoma
     Dosage: 1.0MG /0.5MG, 1/ DAY
     Route: 048
     Dates: start: 20190601, end: 20200427
  2. ACTIVELLA [Suspect]
     Active Substance: ESTRADIOL\NORETHINDRONE ACETATE
     Dosage: 1 MG/0.5 MG, 1 /DAY
     Route: 048
     Dates: start: 20200428, end: 20221101
  3. ELAGOLIX [Suspect]
     Active Substance: ELAGOLIX
     Indication: Uterine leiomyoma
     Dosage: 300MG, 1 /DAY
     Route: 048
     Dates: start: 20190601, end: 20200427
  4. ELAGOLIX [Suspect]
     Active Substance: ELAGOLIX
     Dosage: 300 MG, 1 /DAY
     Route: 048
     Dates: start: 20200428, end: 20221101
  5. MULTIVITAMIN N [ASCORBIC ACID;COLECALCIFEROL;CYANOCOBALAMIN;FERROUS FU [Concomitant]
     Indication: Vitamin supplementation
     Dosage: 1 TABLETS, 1 /DAY
     Route: 065
     Dates: start: 2014
  6. IBUPROFEN [Concomitant]
     Active Substance: IBUPROFEN
     Indication: Dysmenorrhoea
     Dosage: 400 MG, AS NECESSARY
     Route: 065
     Dates: start: 2017, end: 20220701
  7. IBUPROFEN [Concomitant]
     Active Substance: IBUPROFEN
     Indication: SARS-CoV-2 test positive
  8. IRON DEXTRAN [Concomitant]
     Active Substance: IRON DEXTRAN
     Indication: Anaemia
     Dosage: 325 MG, 1 /DAY
     Route: 065
     Dates: start: 2015
  9. LEVOTHYROXINE SODIUM [Concomitant]
     Active Substance: LEVOTHYROXINE SODIUM
     Indication: Hypothyroidism
     Dosage: 75 UG, 1/ DAYS
     Dates: start: 20220731

REACTIONS (1)
  - Pulmonary embolism [Recovered/Resolved]

NARRATIVE: CASE EVENT DATE: 20221103
